FAERS Safety Report 7714983-5 (Version None)
Quarter: 2011Q3

REPORT INFORMATION
  Report Type: 
  Country: None (occurrence: None)
  Receive Date: 20110829
  Receipt Date: 20110607
  Transmission Date: 20111222
  Serious: No
  Sender: FDA-Public Use
  Company Number: US-ASTRAZENECA-2011SE35109

PATIENT
  Sex: Female

DRUGS (1)
  1. VIMOVO [Suspect]
     Route: 048

REACTIONS (7)
  - DYSPNOEA [None]
  - EYE SWELLING [None]
  - CONFUSIONAL STATE [None]
  - DRY MOUTH [None]
  - PALPITATIONS [None]
  - SLEEP DISORDER [None]
  - DYSPHAGIA [None]
